FAERS Safety Report 8860038 (Version 1)
Quarter: 2012Q4

REPORT INFORMATION
  Report Type: 
  Country: US (occurrence: US)
  Receive Date: 20121025
  Receipt Date: 20121025
  Transmission Date: 20130627
  Serious: No
  Sender: FDA-Public Use
  Company Number: US-TEVA-353171USA

PATIENT

DRUGS (1)
  1. METHOTREXATE [Suspect]
     Dosage: 2.8571 Milligram Daily;

REACTIONS (1)
  - Pyrexia [Unknown]
